FAERS Safety Report 6649712-X (Version None)
Quarter: 2010Q1

REPORT INFORMATION
  Report Type: 
  Country: None (occurrence: None)
  Receive Date: 20100324
  Receipt Date: 20100324
  Transmission Date: 20100710
  Serious: Yes (Other)
  Sender: FDA-Public Use
  Company Number: None

PATIENT
  Sex: Male
  Weight: 70.3075 kg

DRUGS (1)
  1. OMEPRAZOLE [Suspect]
     Indication: GASTROOESOPHAGEAL REFLUX DISEASE
     Dosage: PO
     Route: 048
     Dates: start: 20091201, end: 20091210

REACTIONS (4)
  - ANGER [None]
  - DRUG INEFFECTIVE [None]
  - PRODUCT SUBSTITUTION ISSUE [None]
  - STRESS [None]
